FAERS Safety Report 5330612-2 (Version None)
Quarter: 2007Q2

REPORT INFORMATION
  Report Type: 
  Country: None (occurrence: None)
  Receive Date: 20070516
  Receipt Date: 20070508
  Transmission Date: 20071010
  Serious: Yes (Other)
  Sender: FDA-Public Use
  Company Number: 2007SP007190

PATIENT
  Age: 62 Year
  Sex: Female

DRUGS (6)
  1. PEGETRON (PEGINTERFERON ALFA-2B W/RIBAVIRIN) (PEGYLATED INTERFERON ALF [Suspect]
     Indication: HEPATITIS C
     Dosage: 150 MCG;SC, PO
     Route: 058
     Dates: start: 20060704, end: 20070424
  2. PEGETRON (PEGINTERFERON ALFA-2B W/RIBAVIRIN) (PEGYLATED INTERFERON ALF [Suspect]
     Indication: HEPATITIS C
     Dosage: 150 MCG;SC, PO
     Route: 058
     Dates: start: 20060704, end: 20070424
  3. APO-KETOROLAC [Concomitant]
  4. NEUPOGEN [Concomitant]
  5. DIOVAN [Concomitant]
  6. TYLENOL [Concomitant]

REACTIONS (3)
  - CATARACT [None]
  - EYE HAEMORRHAGE [None]
  - RETINAL DETACHMENT [None]
